FAERS Safety Report 7331804-3 (Version None)
Quarter: 2011Q1

REPORT INFORMATION
  Report Type: 
  Country: None (occurrence: None)
  Receive Date: 20110304
  Receipt Date: 20100316
  Transmission Date: 20110831
  Serious: Yes (Other)
  Sender: FDA-Public Use
  Company Number: US-PFIZER INC-2010014448

PATIENT
  Sex: Male
  Weight: 77 kg

DRUGS (1)
  1. DILANTIN [Suspect]
     Indication: SURGERY
     Dosage: 300 MG, 2X/DAY
     Route: 048
     Dates: start: 20070401

REACTIONS (2)
  - MOOD SWINGS [None]
  - MENTAL STATUS CHANGES [None]
